FAERS Safety Report 9749859 (Version 3)
Quarter: 2014Q1

REPORT INFORMATION
  Report Type: Spontaneous
  Country: GB (occurrence: GB)
  Receive Date: 20131212
  Receipt Date: 20140211
  Transmission Date: 20141002
  Serious: Yes (Death, Hospitalization, Disabling, Other)
  Sender: FDA-Public Use
  Company Number: GB-PFIZER INC-2013354159

PATIENT
  Age: 71 Year
  Sex: Female
  Weight: 70 kg

DRUGS (5)
  1. AMIODARONE HCL [Suspect]
     Dosage: 200 MG, 1X/DAY
  2. METOPROLOL TARTRATE [Interacting]
     Indication: ATRIAL FIBRILLATION
     Dosage: 25 MG, UNK
     Route: 048
     Dates: start: 20130517, end: 20130517
  3. LISINOPRIL [Concomitant]
     Dosage: 10 MG, TWICE DAILY
  4. BUMETANIDE [Concomitant]
     Dosage: 1 MG, 2X/DAY
  5. LEVOTHYROXINE [Concomitant]
     Dosage: 25 MCG, 1X/DAY

REACTIONS (5)
  - Labelled drug-drug interaction medication error [Fatal]
  - Renal failure [Fatal]
  - Cardiogenic shock [Unknown]
  - Activities of daily living impaired [Unknown]
  - Circulatory collapse [Recovered/Resolved]
